FAERS Safety Report 16397852 (Version 6)
Quarter: 2019Q4

REPORT INFORMATION
  Report Type: Report from Study
  Country: FR (occurrence: FR)
  Receive Date: 20190606
  Receipt Date: 20191220
  Transmission Date: 20200122
  Serious: Yes (Hospitalization)
  Sender: FDA-Public Use
  Company Number: PHHO2019FR005764

PATIENT
  Age: 72 Year
  Sex: Male
  Weight: 82 kg

DRUGS (7)
  1. CLOBEX [Concomitant]
     Active Substance: CLOBETASOL PROPIONATE
     Indication: PSORIASIS
     Dosage: UNK
     Route: 065
     Dates: start: 20190410
  2. DABRAFENIB [Suspect]
     Active Substance: DABRAFENIB
     Indication: MALIGNANT MELANOMA
     Dosage: 150 MG, BID
     Route: 048
     Dates: start: 20190313, end: 20190527
  3. APROVEL [Concomitant]
     Active Substance: IRBESARTAN
     Indication: CORONARY ARTERIAL STENT INSERTION
     Dosage: UNK
     Route: 065
     Dates: start: 20060101, end: 20190527
  4. ATENOLOL. [Concomitant]
     Active Substance: ATENOLOL
     Indication: CORONARY ARTERIAL STENT INSERTION
     Dosage: UNK
     Route: 065
     Dates: start: 20060101
  5. KARDEGIC [Concomitant]
     Active Substance: ASPIRIN DL-LYSINE
     Indication: CORONARY ARTERIAL STENT INSERTION
     Dosage: UNK
     Route: 065
     Dates: start: 20060101
  6. TRAMETINIB [Suspect]
     Active Substance: TRAMETINIB
     Indication: MALIGNANT MELANOMA
     Dosage: 2 MG, QD
     Route: 048
     Dates: start: 20190313, end: 20190527
  7. LERCAN [Concomitant]
     Active Substance: LERCANIDIPINE
     Indication: CORONARY ARTERIAL STENT INSERTION
     Dosage: UNK
     Route: 065
     Dates: start: 20060101, end: 20190527

REACTIONS (1)
  - Atrial fibrillation [Recovered/Resolved]

NARRATIVE: CASE EVENT DATE: 20190527
